FAERS Safety Report 4289966-0 (Version None)
Quarter: 2004Q1

REPORT INFORMATION
  Report Type: 
  Country: None (occurrence: None)
  Receive Date: 20040209
  Receipt Date: 20040130
  Transmission Date: 20041129
  Serious: Yes (Death)
  Sender: FDA-Public Use
  Company Number: FR-ROCHE-357616

PATIENT
  Sex: Male

DRUGS (3)
  1. PEGASYS [Suspect]
     Indication: DRUG USE FOR UNKNOWN INDICATION
     Route: 058
  2. COPEGUS [Concomitant]
  3. ANTIDEPRESSANT [Concomitant]

REACTIONS (2)
  - GASTRIC PERFORATION [None]
  - PANCREATIC CARCINOMA [None]
